FAERS Safety Report 4315286-1 (Version None)
Quarter: 2004Q1

REPORT INFORMATION
  Report Type: 
  Country: None (occurrence: None)
  Receive Date: 20040309
  Receipt Date: 20040220
  Transmission Date: 20041129
  Serious: Yes (Life-Threatening, Hospitalization, Disabling)
  Sender: FDA-Public Use
  Company Number: CH-SHR-04-021457

PATIENT
  Age: 63 Year
  Sex: Female

DRUGS (3)
  1. CLIMARA [Suspect]
     Indication: MENOPAUSAL SYMPTOMS
     Dosage: 50 UG/DAY, CONT, TRANSDERMAL
     Route: 062
     Dates: start: 19990101, end: 20011201
  2. LIVIAL [Suspect]
     Indication: MENOPAUSAL SYMPTOMS
     Dosage: 2.5 MG/D, ORAL
     Route: 048
     Dates: start: 20021201, end: 20031201
  3. ESTRADERM [Suspect]
     Indication: MENOPAUSAL SYMPTOMS
     Dosage: 50 UG/DAY, TRANSDERMAL
     Route: 062
     Dates: start: 19900301, end: 19941201

REACTIONS (1)
  - BREAST CANCER STAGE I [None]
